FAERS Safety Report 6790273-2 (Version None)
Quarter: 2010Q2

REPORT INFORMATION
  Report Type: 
  Country: None (occurrence: None)
  Receive Date: 20100624
  Receipt Date: 20100618
  Transmission Date: 20101027
  Serious: Yes (Other)
  Sender: FDA-Public Use
  Company Number: AT-BRISTOL-MYERS SQUIBB COMPANY-15085590

PATIENT
  Sex: Male

DRUGS (2)
  1. ABILIFY [Suspect]
     Route: 064
     Dates: start: 20070701
  2. LITHIUM [Suspect]
     Route: 064
     Dates: start: 20070101

REACTIONS (1)
  - PREMATURE BABY [None]
